FAERS Safety Report 9391315 (Version 1)
Quarter: 2013Q3

REPORT INFORMATION
  Report Type: Spontaneous
  Country: US (occurrence: None)
  Receive Date: 20130705
  Receipt Date: 20130705
  Transmission Date: 20140515
  Serious: Yes (Hospitalization, Other)
  Sender: FDA-Public Use
  Company Number: KV201300145

PATIENT
  Age: 39 Year
  Sex: Female

DRUGS (2)
  1. MAKENA [Suspect]
     Indication: PREMATURE DELIVERY
     Route: 030
  2. LOVENOX (ENOXAPARIN SODIUM) [Concomitant]

REACTIONS (3)
  - Maternal exposure during pregnancy [None]
  - Premature rupture of membranes [None]
  - Premature delivery [None]
